FAERS Safety Report 9836750 (Version 2)
Quarter: 2014Q1

REPORT INFORMATION
  Report Type: Spontaneous
  Country: US (occurrence: US)
  Receive Date: 20140123
  Receipt Date: 20140210
  Transmission Date: 20141002
  Serious: No
  Sender: FDA-Public Use
  Company Number: US-PFIZER INC-2014015832

PATIENT
  Age: 57 Year
  Sex: Female

DRUGS (3)
  1. ZITHROMAX [Suspect]
     Dosage: UNK
  2. ASA [Suspect]
     Dosage: UNK
  3. MOTRIN [Suspect]
     Dosage: UNK

REACTIONS (1)
  - Drug hypersensitivity [Unknown]
